FAERS Safety Report 10261236 (Version 1)
Quarter: 2014Q2

REPORT INFORMATION
  Report Type: Spontaneous
  Country: US (occurrence: US)
  Receive Date: 20140626
  Receipt Date: 20140626
  Transmission Date: 20141212
  Serious: No
  Sender: FDA-Public Use
  Company Number: US-009507513-1406USA008863

PATIENT
  Sex: Male

DRUGS (2)
  1. DULERA [Suspect]
     Indication: ASTHMA
     Dosage: TWO PUFFS AT 9:23 A.M. AND THEN ANOTHER PUFF AT 9:35 A.M.
     Route: 055
     Dates: start: 20140617, end: 20140617
  2. DULERA [Suspect]
     Dosage: 2 INHALATIONS 2 TIMES DAILY
     Route: 055

REACTIONS (3)
  - Feeling jittery [Unknown]
  - Hyperhidrosis [Unknown]
  - Inappropriate schedule of drug administration [Unknown]
